FAERS Safety Report 18448143 (Version 3)
Quarter: 2024Q1

REPORT INFORMATION
  Report Type: Spontaneous
  Country: JP (occurrence: JP)
  Receive Date: 20201101
  Receipt Date: 20240128
  Transmission Date: 20240409
  Serious: Yes (Life-Threatening, Hospitalization)
  Sender: FDA-Public Use
  Company Number: None

PATIENT
  Age: 57 Year
  Sex: Male
  Weight: 99.5 kg

DRUGS (7)
  1. ELTROMBOPAG OLAMINE [Suspect]
     Active Substance: ELTROMBOPAG OLAMINE
     Indication: Immune thrombocytopenia
     Dosage: 37.5 MG
     Route: 048
     Dates: start: 20190121, end: 20200927
  2. EVEROLIMUS [Suspect]
     Active Substance: EVEROLIMUS
     Indication: Liver transplant
     Dosage: UNK
     Route: 065
  3. EVEROLIMUS [Suspect]
     Active Substance: EVEROLIMUS
     Indication: Immunosuppressant drug therapy
  4. PREDONINE [Suspect]
     Active Substance: PREDNISOLONE
     Indication: Liver transplant
     Dosage: 30 MG
     Route: 048
     Dates: start: 20181228, end: 20200726
  5. PREDONINE [Suspect]
     Active Substance: PREDNISOLONE
     Indication: Immunosuppressant drug therapy
  6. TACROLIMUS [Suspect]
     Active Substance: TACROLIMUS
     Indication: Immunosuppressant drug therapy
     Dosage: 3 MG
     Route: 065
  7. TACROLIMUS [Suspect]
     Active Substance: TACROLIMUS
     Indication: Liver transplant
     Dosage: 2 MG
     Route: 065

REACTIONS (10)
  - Thrombosis [Recovering/Resolving]
  - Pulmonary embolism [Recovering/Resolving]
  - Right ventricular enlargement [Unknown]
  - Hepatic artery thrombosis [Recovering/Resolving]
  - Splenic infarction [Recovering/Resolving]
  - Abdominal pain [Recovered/Resolved]
  - Vomiting [Recovered/Resolved]
  - Post transplant lymphoproliferative disorder [Recovering/Resolving]
  - Hypercoagulation [Unknown]
  - Immune thrombocytopenia [Unknown]

NARRATIVE: CASE EVENT DATE: 20200928
